FAERS Safety Report 9263387 (Version 1)
Quarter: 2013Q2

REPORT INFORMATION
  Report Type: Spontaneous
  Country: US (occurrence: US)
  Receive Date: 20130430
  Receipt Date: 20130430
  Transmission Date: 20140414
  Serious: No
  Sender: FDA-Public Use
  Company Number: US-ABBOTT-13P-163-1059775-00

PATIENT
  Sex: Female

DRUGS (3)
  1. CREON [Suspect]
     Indication: PRODUCT USED FOR UNKNOWN INDICATION
     Dates: start: 2011
  2. CREON [Suspect]
  3. CREON [Suspect]

REACTIONS (2)
  - Gastric disorder [Unknown]
  - Pain [Unknown]
